FAERS Safety Report 9217889 (Version 2)
Quarter: 2013Q3

REPORT INFORMATION
  Report Type: Report from Study
  Country: MW (occurrence: MW)
  Receive Date: 20130408
  Receipt Date: 20130802
  Transmission Date: 20140515
  Serious: Yes (Life-Threatening, Other)
  Sender: FDA-Public Use
  Company Number: MW-ABBOTT-13P-100-1072956-00

PATIENT
  Age: 37 Year
  Sex: Male

DRUGS (4)
  1. RITONAVIR [Suspect]
     Indication: HIV INFECTION
     Route: 048
     Dates: start: 20120312
  2. EMTRICITABINE W/TENOFOVIR DISOPROXIL FUMARATE [Concomitant]
     Indication: HIV INFECTION
     Dosage: 200/300 MG
     Route: 048
     Dates: start: 20120312
  3. ATAZANAVIR SULFATE [Concomitant]
     Indication: HIV INFECTION
     Route: 048
     Dates: start: 20120312
  4. IBUPROFEN [Concomitant]
     Indication: HEADACHE
     Route: 048
     Dates: end: 20130319

REACTIONS (2)
  - Blood phosphorus decreased [Recovered/Resolved]
  - Gastroenteritis [Recovered/Resolved]
